FAERS Safety Report 15928454 (Version 1)
Quarter: 2019Q1

REPORT INFORMATION
  Report Type: Report from Study
  Country: US (occurrence: US)
  Receive Date: 20190206
  Receipt Date: 20190206
  Transmission Date: 20190417
  Serious: Yes (Other)
  Sender: FDA-Public Use
  Company Number: US-SA-2019SA028364

PATIENT
  Age: 78 Year
  Sex: Male

DRUGS (1)
  1. VANDETANIB. [Suspect]
     Active Substance: VANDETANIB
     Indication: THYROID CANCER
     Dosage: 100 MG
     Route: 048
     Dates: start: 20110614

REACTIONS (2)
  - Cellulitis [Not Recovered/Not Resolved]
  - Skin papilloma [Not Recovered/Not Resolved]
